FAERS Safety Report 7441358-9 (Version None)
Quarter: 2011Q2

REPORT INFORMATION
  Report Type: 
  Country: None (occurrence: None)
  Receive Date: 20110415
  Receipt Date: 20110329
  Transmission Date: 20111010
  Serious: Yes (Disabling)
  Sender: FDA-Public Use
  Company Number: 2011MA003192

PATIENT
  Sex: Female

DRUGS (1)
  1. METOCLOPRAMIDE [Suspect]
     Dates: start: 20080401, end: 20090101

REACTIONS (11)
  - TREMOR [None]
  - EMOTIONAL DISORDER [None]
  - INJURY [None]
  - DYSKINESIA [None]
  - ACTIVITIES OF DAILY LIVING IMPAIRED [None]
  - EMOTIONAL DISTRESS [None]
  - ANXIETY [None]
  - ASTHENIA [None]
  - EXTRAPYRAMIDAL DISORDER [None]
  - ECONOMIC PROBLEM [None]
  - MENTAL DISORDER [None]
